FAERS Safety Report 16999282 (Version 3)
Quarter: 2020Q1

REPORT INFORMATION
  Report Type: Spontaneous
  Country: JP (occurrence: JP)
  Receive Date: 20191106
  Receipt Date: 20200108
  Transmission Date: 20200409
  Serious: Yes (Hospitalization)
  Sender: FDA-Public Use
  Company Number: JP-PFIZER INC-2019472418

PATIENT
  Age: 57 Year
  Sex: Male

DRUGS (7)
  1. LEVOFLOXACIN. [Suspect]
     Active Substance: LEVOFLOXACIN
     Indication: PSOAS ABSCESS
     Dosage: 500 UNK, 1X/DAY
     Route: 048
     Dates: start: 20190812, end: 20190825
  2. LYRICA [Suspect]
     Active Substance: PREGABALIN
     Indication: SCIATICA
     Dosage: 50 MG, 2X/DAY
     Route: 048
     Dates: start: 20190906
  3. PREDNISOLONE. [Suspect]
     Active Substance: PREDNISOLONE
     Indication: RHEUMATOID ARTHRITIS
     Dosage: 17.5 UNK, 1X/DAY
     Route: 048
  4. LYRICA [Suspect]
     Active Substance: PREGABALIN
     Indication: NEURALGIA
     Dosage: 50 MG, 2X/DAY (50MG AFTER BREAKFAST AND 50MG BEFORE SLEEP)
     Route: 048
     Dates: start: 20180801, end: 20190820
  5. CELECOX [Concomitant]
     Active Substance: CELECOXIB
     Dosage: 200 UNK, 2X/DAY
     Route: 048
     Dates: start: 20190701
  6. LEVOFLOXACIN. [Suspect]
     Active Substance: LEVOFLOXACIN
     Dosage: UNK
     Dates: start: 20190927, end: 20191015
  7. CELECOX [Concomitant]
     Active Substance: CELECOXIB
     Indication: RHEUMATOID ARTHRITIS
     Dosage: 100 UNK, 2X/DAY
     Route: 048
     Dates: end: 20190701

REACTIONS (7)
  - Diplopia [Recovered/Resolved]
  - Blood lactate dehydrogenase increased [Unknown]
  - Lymphocyte count decreased [Unknown]
  - Pyrexia [Unknown]
  - Osteonecrosis [Not Recovered/Not Resolved]
  - Blood alkaline phosphatase increased [Unknown]
  - Haematocrit decreased [Unknown]

NARRATIVE: CASE EVENT DATE: 20190601
